FAERS Safety Report 6283112-X (Version None)
Quarter: 2009Q3

REPORT INFORMATION
  Report Type: 
  Country: None (occurrence: None)
  Receive Date: 20090724
  Receipt Date: 20090716
  Transmission Date: 20100115
  Serious: Yes (Hospitalization)
  Sender: FDA-Public Use
  Company Number: A0798312A

PATIENT
  Sex: Male
  Weight: 75 kg

DRUGS (1)
  1. LEUKERAN [Suspect]
     Dosage: 5TAB UNKNOWN
     Route: 065
     Dates: start: 20040101

REACTIONS (4)
  - CONDITION AGGRAVATED [None]
  - DRUG INEFFECTIVE [None]
  - NODULE [None]
  - PRODUCT QUALITY ISSUE [None]
